FAERS Safety Report 6924630 (Version 3)
Quarter: 2013Q2

REPORT INFORMATION
  Report Type: Spontaneous
  Country: IN (occurrence: IN)
  Receive Date: 20090302
  Receipt Date: 20130625
  Transmission Date: 20140414
  Serious: Yes (Hospitalization, Other)
  Sender: FDA-Public Use
  Company Number: IN-PFIZER INC-2009171824

PATIENT
  Age: 25 Year
  Sex: Female

DRUGS (3)
  1. AMLODIPINE BESILATE [Suspect]
     Dosage: 100 MG, SINGLE
     Route: 048
  2. DICLOFENAC SODIUM [Suspect]
     Route: 048
  3. SALBUTAMOL [Concomitant]
     Dosage: INHALED WHEN REQUIRED

REACTIONS (5)
  - Overdose [Recovered/Resolved]
  - Hypotension [Recovered/Resolved]
  - Non-cardiogenic pulmonary oedema [Recovered/Resolved]
  - Vomiting [Recovered/Resolved]
  - Somnolence [Recovered/Resolved]
